FAERS Safety Report 24091285 (Version 1)
Quarter: 2024Q3

REPORT INFORMATION
  Report Type: Spontaneous
  Country: US (occurrence: None)
  Receive Date: 20240714
  Receipt Date: 20240714
  Transmission Date: 20241016
  Serious: Yes (unspecified)
  Sender: Public
  Company Number: None

PATIENT
  Age: 34 Month
  Sex: Female
  Weight: 15.75 kg

DRUGS (1)
  1. MIRALAX [Suspect]
     Active Substance: POLYETHYLENE GLYCOL 3350
     Indication: Constipation
     Dates: start: 20240301, end: 20240501

REACTIONS (8)
  - Neurological symptom [None]
  - Abnormal behaviour [None]
  - Anxiety [None]
  - Anxiety [None]
  - Fear [None]
  - Screaming [None]
  - Irritability [None]
  - Hyperacusis [None]

NARRATIVE: CASE EVENT DATE: 20240427
